FAERS Safety Report 8484525-8 (Version None)
Quarter: 2012Q3

REPORT INFORMATION
  Report Type: 
  Country: None (occurrence: None)
  Receive Date: 20120703
  Receipt Date: 20120625
  Transmission Date: 20120928
  Serious: Yes (Hospitalization)
  Sender: FDA-Public Use
  Company Number: FR-SANOFI-AVENTIS-2012SA045088

PATIENT
  Age: 29 Year
  Sex: Female

DRUGS (2)
  1. RIFAMPIN AND ISONIAZID [Suspect]
     Indication: TUBERCULOSIS
     Route: 048
     Dates: start: 20120510, end: 20120528
  2. ENTOCORT EC [Suspect]
     Indication: CROHN'S DISEASE
     Route: 065
     Dates: start: 20111201

REACTIONS (1)
  - PANCREATITIS ACUTE [None]
